FAERS Safety Report 4886786-0 (Version None)
Quarter: 2006Q1

REPORT INFORMATION
  Report Type: 
  Country: None (occurrence: None)
  Receive Date: 20060119
  Receipt Date: 20060119
  Transmission Date: 20060701
  Serious: Yes (Hospitalization)
  Sender: FDA-Public Use
  Company Number: None

PATIENT
  Age: 47 Year
  Sex: Male
  Weight: 76.3 kg

DRUGS (4)
  1. NITROGLYCERIN [Suspect]
  2. OMEPRAZOLE [Concomitant]
  3. SIMVASTATIN [Concomitant]
  4. MORPHINE [Concomitant]

REACTIONS (3)
  - HYPERHIDROSIS [None]
  - HYPOTENSION [None]
  - PALLOR [None]
